FAERS Safety Report 5001905-3 (Version None)
Quarter: 2006Q2

REPORT INFORMATION
  Report Type: 
  Country: None (occurrence: None)
  Receive Date: 20060515
  Receipt Date: 20041117
  Transmission Date: 20061013
  Serious: Yes (Hospitalization)
  Sender: FDA-Public Use
  Company Number: US-MERCK-0411USA03032

PATIENT
  Age: 81 Year
  Sex: Female
  Weight: 87 kg

DRUGS (8)
  1. VIOXX [Suspect]
     Route: 048
     Dates: start: 20020301, end: 20040901
  2. LEVOTHYROXINE SODIUM [Concomitant]
     Route: 048
  3. ASPIRIN [Concomitant]
     Route: 048
  4. NEXIUM [Concomitant]
     Route: 048
  5. AMBIEN [Concomitant]
     Route: 065
  6. ATARAX [Concomitant]
     Indication: PRURITUS
     Route: 048
  7. SEREVENT [Concomitant]
     Route: 055
  8. CARBIDOPA AND LEVODOPA [Concomitant]
     Route: 065

REACTIONS (12)
  - BLOOD TRIGLYCERIDES INCREASED [None]
  - CHEST PAIN [None]
  - CORONARY ARTERY DISEASE [None]
  - DYSPNOEA [None]
  - FALL [None]
  - HAEMOPTYSIS [None]
  - HYPERTENSION [None]
  - HYPOTENSION [None]
  - LACERATION [None]
  - MYOCARDIAL INFARCTION [None]
  - PNEUMOTHORAX [None]
  - VISUAL ACUITY REDUCED [None]
